FAERS Safety Report 5366696-5 (Version None)
Quarter: 2007Q2

REPORT INFORMATION
  Report Type: 
  Country: None (occurrence: None)
  Receive Date: 20070622
  Receipt Date: 20060501
  Transmission Date: 20071010
  Serious: No
  Sender: FDA-Public Use
  Company Number: US-ASTRAZENECA-2006UW07855

PATIENT
  Age: 59 Year
  Sex: Female
  Weight: 77.1 kg

DRUGS (2)
  1. RHINOCORT [Suspect]
     Indication: SEASONAL ALLERGY
     Route: 045
  2. FOSAMAX D [Concomitant]

REACTIONS (5)
  - ACCIDENTAL OVERDOSE [None]
  - HEART RATE DECREASED [None]
  - HYPOTENSION [None]
  - MEDICATION ERROR [None]
  - SYNCOPE [None]
